FAERS Safety Report 9170618 (Version 1)
Quarter: 2013Q1

REPORT INFORMATION
  Report Type: Spontaneous
  Country: IE (occurrence: IE)
  Receive Date: 20130319
  Receipt Date: 20130319
  Transmission Date: 20140127
  Serious: Yes (Other)
  Sender: FDA-Public Use
  Company Number: IE-JNJFOC-20130307219

PATIENT
  Age: 58 Year
  Sex: Female

DRUGS (1)
  1. NICORETTE 4 MG GUM [Suspect]
     Indication: SMOKING CESSATION THERAPY
     Route: 065
     Dates: start: 2012

REACTIONS (2)
  - Nicotine dependence [Not Recovered/Not Resolved]
  - Intentional drug misuse [Not Recovered/Not Resolved]
